FAERS Safety Report 9357517 (Version 4)
Quarter: 2013Q4

REPORT INFORMATION
  Report Type: Spontaneous
  Country: GB (occurrence: GB)
  Receive Date: 20130620
  Receipt Date: 20131027
  Transmission Date: 20140711
  Serious: Yes (Death, Other)
  Sender: FDA-Public Use
  Company Number: PHFR2013GB003233

PATIENT
  Age: 66 Year
  Sex: Male

DRUGS (8)
  1. CLOZARIL [Suspect]
     Indication: SCHIZOPHRENIA
     Dosage: UNK
     Route: 048
     Dates: start: 20040305
  2. CLOZARIL [Suspect]
     Dosage: 400 MG
  3. LANSOPRAZOLE [Concomitant]
     Dosage: 15 MG, UNK
  4. SIMVASTATIN [Concomitant]
     Indication: BLOOD CHOLESTEROL INCREASED
     Dosage: 40 MG
     Route: 048
  5. INHALATION [Concomitant]
     Indication: ASTHMA
     Dosage: UNK
  6. AMISULPRIDE [Concomitant]
     Indication: SCHIZOPHRENIA, PARANOID TYPE
     Dosage: 200 MG, UNK
     Route: 048
  7. ASPIRIN [Concomitant]
     Dosage: 75 MG
     Route: 048
  8. ADCAL D3 [Concomitant]
     Dosage: 2 DF
     Route: 048

REACTIONS (7)
  - Circulatory collapse [Fatal]
  - Asthma [Fatal]
  - Bronchopneumonia [Fatal]
  - Diabetes mellitus [Fatal]
  - Myocardial infarction [Fatal]
  - Sudden death [Fatal]
  - Electrocardiogram QT prolonged [Unknown]
